FAERS Safety Report 10698495 (Version 2)
Quarter: 2015Q3

REPORT INFORMATION
  Report Type: Spontaneous
  Country: JP (occurrence: JP)
  Receive Date: 20150108
  Receipt Date: 20150914
  Transmission Date: 20151125
  Serious: Yes (Hospitalization)
  Sender: FDA-Public Use
  Company Number: JP-BAYER-2015-001768

PATIENT
  Age: 80 Year
  Sex: Male
  Weight: 56.2 kg

DRUGS (9)
  1. AMARYL [Concomitant]
     Active Substance: GLIMEPIRIDE
     Indication: DIABETES MELLITUS
     Dosage: DAILY DOSE 1 MG
     Route: 048
     Dates: start: 20140612
  2. NEXAVAR [Suspect]
     Active Substance: SORAFENIB
     Indication: HEPATOCELLULAR CARCINOMA
     Dosage: DAILY DOSE 400 MG
     Route: 048
     Dates: start: 20141118, end: 20141122
  3. LIVACT [Concomitant]
     Active Substance: AMINO ACIDS
     Indication: HEPATIC CIRRHOSIS
     Dosage: DAILY DOSE 3 DF
     Route: 048
     Dates: start: 20131225
  4. VILDAGLIPTIN [Concomitant]
     Active Substance: VILDAGLIPTIN
     Indication: DIABETES MELLITUS
     Dosage: DAILY DOSE 100 MG
     Route: 048
     Dates: start: 20131209
  5. ZOLPIDEM TARTRATE. [Concomitant]
     Active Substance: ZOLPIDEM TARTRATE
     Indication: INSOMNIA
     Dosage: DAILY DOSE 5 MG
     Route: 048
     Dates: start: 20131209
  6. URSO [Concomitant]
     Active Substance: URSODIOL
     Indication: HEPATIC CIRRHOSIS
     Dosage: DAILY DOSE 600 MG
     Route: 048
     Dates: start: 20131209
  7. PIARLE TAKATA [Concomitant]
     Indication: HEPATIC CIRRHOSIS
     Dosage: DAILY DOSE 12 DF
     Route: 048
     Dates: start: 20131216
  8. AMINOLEBAN EN [Concomitant]
     Active Substance: UNSPECIFIED INGREDIENT
     Indication: HEPATIC CIRRHOSIS
     Dosage: DAILY DOSE 50 G
     Route: 048
     Dates: start: 20140414
  9. TAKEPRON [Concomitant]
     Active Substance: LANSOPRAZOLE
     Indication: GASTRITIS
     Dosage: DAILY DOSE 15 MG
     Route: 048
     Dates: start: 20131209

REACTIONS (4)
  - Hepatic encephalopathy [Recovered/Resolved]
  - Hyperammonaemia [Recovered/Resolved]
  - Abnormal behaviour [Recovered/Resolved]
  - Disorientation [Recovered/Resolved]

NARRATIVE: CASE EVENT DATE: 20141122
